FAERS Safety Report 23307197 (Version 6)
Quarter: 2024Q4

REPORT INFORMATION
  Report Type: Report from Study
  Country: US (occurrence: US)
  Receive Date: 20231218
  Receipt Date: 20241111
  Transmission Date: 20250115
  Serious: Yes (Hospitalization, Other)
  Sender: UCB
  Company Number: US-UCBSA-2023050008

PATIENT
  Sex: Female
  Weight: 55.8 kg

DRUGS (10)
  1. FINTEPLA [Suspect]
     Active Substance: FENFLURAMINE
     Indication: Epilepsy
     Dosage: 3 MILLILITER, 2X/DAY (BID)
     Dates: start: 20231013
  2. FINTEPLA [Suspect]
     Active Substance: FENFLURAMINE
     Indication: Off label use
     Dosage: 6 MILLILITER, 2X/DAY (BID)
     Dates: start: 202310
  3. FINTEPLA [Suspect]
     Active Substance: FENFLURAMINE
     Indication: Lennox-Gastaut syndrome
     Dosage: 9 MILLILITER, 2X/DAY (BID)
     Dates: start: 2023
  4. FINTEPLA [Suspect]
     Active Substance: FENFLURAMINE
     Dosage: 9 MILLILITER, 2X/DAY (BID)
     Dates: start: 2023
  5. FINTEPLA [Suspect]
     Active Substance: FENFLURAMINE
     Dosage: 9 MILLILITER, 2X/DAY (BID)
     Dates: start: 2023, end: 20231120
  6. FINTEPLA [Suspect]
     Active Substance: FENFLURAMINE
     Dosage: 9 MILLILITER, 2X/DAY (BID)
     Dates: start: 20231013
  7. FINTEPLA [Suspect]
     Active Substance: FENFLURAMINE
     Dosage: 6 MILLILITER, 2X/DAY (BID)
  8. FINTEPLA [Suspect]
     Active Substance: FENFLURAMINE
     Dosage: 6 MILLILITER, 2X/DAY (BID)
  9. FINTEPLA [Suspect]
     Active Substance: FENFLURAMINE
     Dosage: 6 MG/KG/DAY
  10. TOPAMAX [Suspect]
     Active Substance: TOPIRAMATE
     Indication: Product used for unknown indication
     Dosage: UNK

REACTIONS (13)
  - Hospitalisation [Not Recovered/Not Resolved]
  - Decreased appetite [Not Recovered/Not Resolved]
  - Vomiting [Not Recovered/Not Resolved]
  - Dizziness [Unknown]
  - Weight decreased [Unknown]
  - Nephrolithiasis [Recovered/Resolved]
  - Atonic seizures [Not Recovered/Not Resolved]
  - Nausea [Recovered/Resolved]
  - Headache [Not Recovered/Not Resolved]
  - Lethargy [Not Recovered/Not Resolved]
  - Fall [Not Recovered/Not Resolved]
  - Off label use [Unknown]
  - Overdose [Unknown]

NARRATIVE: CASE EVENT DATE: 20230101
